FAERS Safety Report 8926307 (Version 2)
Quarter: 2013Q1

REPORT INFORMATION
  Report Type: Spontaneous
  Country: DE (occurrence: DE)
  Receive Date: 20121127
  Receipt Date: 20130213
  Transmission Date: 20140127
  Serious: Yes (Hospitalization, Disabling)
  Sender: FDA-Public Use
  Company Number: DE-TEVA-372073USA

PATIENT
  Sex: Male

DRUGS (1)
  1. TREANDA [Suspect]
     Indication: NON-HODGKIN^S LYMPHOMA
     Dosage: UID/QD
     Route: 042
     Dates: start: 20121016, end: 20121017

REACTIONS (7)
  - Amaurosis [Not Recovered/Not Resolved]
  - Renal failure acute [Recovering/Resolving]
  - Tumour lysis syndrome [Recovering/Resolving]
  - Quadriplegia [Recovering/Resolving]
  - Fluid intake reduced [Recovering/Resolving]
  - Dehydration [Recovering/Resolving]
  - Vomiting [Recovering/Resolving]
